FAERS Safety Report 5707776-1 (Version None)
Quarter: 2008Q2

REPORT INFORMATION
  Report Type: 
  Country: None (occurrence: None)
  Receive Date: 20080417
  Receipt Date: 20080407
  Transmission Date: 20081010
  Serious: Yes (Other)
  Sender: FDA-Public Use
  Company Number: GR-BRISTOL-MYERS SQUIBB COMPANY-14150718

PATIENT
  Age: 32 Year
  Sex: Female

DRUGS (8)
  1. CYCLOPHOSPHAMIDE [Suspect]
     Indication: BREAST CANCER
     Dosage: RECEIVED CYCLES 4,5 AND 6 ON 18-OCT-2007, 01-NOV-2007 AND 15-NOV-2007 RESPECTIVELY
     Route: 042
     Dates: start: 20071115, end: 20071115
  2. METHOTREXATE [Suspect]
     Indication: BREAST CANCER
     Dosage: RECEIVED CYCLES 4,5 AND 6 ON 18-OCT-2007, 01-NOV-2007 AND 15-NOV-2007, RESPECTIVELY
     Route: 042
     Dates: start: 20071115, end: 20071115
  3. FLUOROURACIL [Suspect]
     Indication: BREAST CANCER
     Dosage: RECEIVED CYCLES 4,5 AND 6 ON 18-OCT-2007, 01-NOV-2007 AND 15-NOV-2007, RESPECTIVELY
     Route: 042
     Dates: start: 20071115, end: 20071115
  4. ZOFRAN [Concomitant]
  5. ZANTAC [Concomitant]
  6. FENISTIL [Concomitant]
  7. DEXAMETHASONE TAB [Concomitant]
  8. NEULASTA [Concomitant]

REACTIONS (1)
  - ALANINE AMINOTRANSFERASE INCREASED [None]
